FAERS Safety Report 20859254 (Version 1)
Quarter: 2022Q2

REPORT INFORMATION
  Report Type: Spontaneous
  Country: JP (occurrence: JP)
  Receive Date: 20220523
  Receipt Date: 20220523
  Transmission Date: 20220720
  Serious: Yes (Hospitalization)
  Sender: FDA-Public Use
  Company Number: JP-ASTELLAS-2019US045965

PATIENT
  Age: 83 Year
  Sex: Female

DRUGS (6)
  1. BENDAMUSTINE HYDROCHLORIDE [Suspect]
     Active Substance: BENDAMUSTINE HYDROCHLORIDE
     Indication: Follicular lymphoma
     Dosage: 120 MGX1/DAY, CYCLIC (1ST CYCLE)
     Route: 042
     Dates: start: 20190917, end: 20190918
  2. BENDAMUSTINE HYDROCHLORIDE [Suspect]
     Active Substance: BENDAMUSTINE HYDROCHLORIDE
     Dosage: 120 MGX1/DAY, CYCLIC (2ND CYCLE)
     Route: 042
     Dates: start: 20191015, end: 20191016
  3. BENDAMUSTINE HYDROCHLORIDE [Suspect]
     Active Substance: BENDAMUSTINE HYDROCHLORIDE
     Dosage: 120 MGX1/DAY, CYCLIC (3RD CYCLE)
     Route: 042
     Dates: start: 20191114, end: 20191115
  4. OBINUTUZUMAB [Suspect]
     Active Substance: OBINUTUZUMAB
     Indication: Follicular lymphoma
     Dosage: UNK UNK, CYCLIC (1ST CYCLE)
     Route: 041
     Dates: start: 201909
  5. OBINUTUZUMAB [Suspect]
     Active Substance: OBINUTUZUMAB
     Dosage: UNK UNK, CYCLIC (2ND CYCLE)
     Route: 041
     Dates: start: 201910
  6. OBINUTUZUMAB [Suspect]
     Active Substance: OBINUTUZUMAB
     Dosage: UNK UNK, CYCLIC (3RD CYCLE)
     Route: 041
     Dates: start: 201911

REACTIONS (2)
  - Condition aggravated [Recovering/Resolving]
  - Rash [Recovering/Resolving]

NARRATIVE: CASE EVENT DATE: 20191018
